FAERS Safety Report 19087173 (Version 1)
Quarter: 2021Q2

REPORT INFORMATION
  Report Type: Spontaneous
  Country: US (occurrence: US)
  Receive Date: 20210402
  Receipt Date: 20210402
  Transmission Date: 20210717
  Serious: No
  Sender: FDA-Public Use
  Company Number: US-MYLANLABS-2021M1017984

PATIENT
  Sex: Female

DRUGS (1)
  1. ACYCLOVIR OINTMENT USP, 5% [Suspect]
     Active Substance: ACYCLOVIR
     Indication: HERPES VIRUS INFECTION
     Dosage: PEA SIZE AMOUNT, AS DIRECTED, 2X MONTH WHEN OUTBREAK
     Route: 061

REACTIONS (1)
  - Product package associated injury [Recovered/Resolved]
